FAERS Safety Report 9995026 (Version 1)
Quarter: 2014Q1

REPORT INFORMATION
  Report Type: Spontaneous
  Country: CH (occurrence: None)
  Receive Date: 20140306
  Receipt Date: 20140306
  Transmission Date: 20141002
  Serious: Yes (Hospitalization)
  Sender: FDA-Public Use
  Company Number: 20140091

PATIENT
  Age: 44 Year
  Sex: Female

DRUGS (1)
  1. FERINJECT (FERRIC CARBOXYMALTOSE-VIFOR) [Suspect]
     Indication: ANAEMIA
     Route: 042
     Dates: start: 20140117, end: 20140117

REACTIONS (4)
  - Wrong technique in drug usage process [None]
  - Enuresis [None]
  - Convulsion [None]
  - Postictal state [None]
